FAERS Safety Report 11659614 (Version 1)
Quarter: 2015Q4

REPORT INFORMATION
  Report Type: Spontaneous
  Country: IT (occurrence: IT)
  Receive Date: 20151026
  Receipt Date: 20151026
  Transmission Date: 20160304
  Serious: Yes (Other)
  Sender: FDA-Public Use
  Company Number: IT-ACTAVIS-2015-22579

PATIENT
  Age: 79 Year
  Sex: Male
  Weight: 76 kg

DRUGS (1)
  1. DONEPEZIL ACTAVIS [Suspect]
     Active Substance: DONEPEZIL HYDROCHLORIDE
     Indication: DEMENTIA ALZHEIMER^S TYPE
     Dosage: 1 DF, DAILY
     Route: 048
     Dates: start: 20151001, end: 20151014

REACTIONS (4)
  - Restlessness [Recovered/Resolved]
  - Drug effect decreased [Recovered/Resolved]
  - Insomnia [Recovered/Resolved]
  - Irritability [Recovered/Resolved]

NARRATIVE: CASE EVENT DATE: 20151001
